FAERS Safety Report 12798448 (Version 1)
Quarter: 2016Q3

REPORT INFORMATION
  Report Type: Report from Study
  Country: CA (occurrence: CA)
  Receive Date: 20160930
  Receipt Date: 20160930
  Transmission Date: 20161109
  Serious: Yes (Other)
  Sender: FDA-Public Use
  Company Number: CA-AMGEN-CANSL2016130343

PATIENT
  Age: 63 Year
  Sex: Female

DRUGS (3)
  1. VENLAFAXINE XR [Concomitant]
     Active Substance: VENLAFAXINE HYDROCHLORIDE
     Route: 065
  2. REPATHA [Suspect]
     Active Substance: EVOLOCUMAB
     Indication: TYPE IIA HYPERLIPIDAEMIA
     Dosage: 140 MG/ML, UNK
     Route: 065
     Dates: start: 20160819
  3. REPATHA [Suspect]
     Active Substance: EVOLOCUMAB
     Indication: DRUG INTOLERANCE

REACTIONS (11)
  - Thyroid mass [Unknown]
  - Feeling abnormal [Unknown]
  - Hyperhidrosis [Unknown]
  - Chills [Unknown]
  - Feeling cold [Unknown]
  - Influenza like illness [Unknown]
  - Back pain [Unknown]
  - Nausea [Unknown]
  - Skin irritation [Unknown]
  - Feeling hot [Unknown]
  - Decreased appetite [Unknown]
